FAERS Safety Report 15150221 (Version 1)
Quarter: 2018Q3

REPORT INFORMATION
  Report Type: Spontaneous
  Country: DE (occurrence: DE)
  Receive Date: 20180716
  Receipt Date: 20180716
  Transmission Date: 20181010
  Serious: Yes (Hospitalization)
  Sender: FDA-Public Use
  Company Number: DE-US WORLDMEDS, LLC-STA_00017163

PATIENT
  Sex: Male
  Weight: 82 kg

DRUGS (5)
  1. SEROQUEL [Concomitant]
     Active Substance: QUETIAPINE FUMARATE
     Indication: PRODUCT USED FOR UNKNOWN INDICATION
  2. APOMORPHINE HYDROCHLORIDE [Suspect]
     Active Substance: APOMORPHINE HYDROCHLORIDE
     Indication: PARKINSON^S DISEASE
     Dosage: BOLUS: 1 MG
     Route: 058
     Dates: start: 20070321, end: 20140513
  3. ISICOM RET 200MG [Concomitant]
     Indication: PRODUCT USED FOR UNKNOWN INDICATION
  4. TASMAR [Concomitant]
     Active Substance: TOLCAPONE
     Indication: PRODUCT USED FOR UNKNOWN INDICATION
  5. MADOPAR LT 100MG [Concomitant]
     Indication: PRODUCT USED FOR UNKNOWN INDICATION

REACTIONS (5)
  - Confusional state [Not Recovered/Not Resolved]
  - Hallucination [Not Recovered/Not Resolved]
  - Posture abnormal [Not Recovered/Not Resolved]
  - Movement disorder [Not Recovered/Not Resolved]
  - Injection site nodule [Not Recovered/Not Resolved]
